FAERS Safety Report 25782706 (Version 3)
Quarter: 2025Q4

REPORT INFORMATION
  Report Type: Spontaneous
  Country: US (occurrence: US)
  Receive Date: 20250909
  Receipt Date: 20251203
  Transmission Date: 20260118
  Serious: No
  Sender: SANOFI AVENTIS
  Company Number: US-SA-2025SA269161

PATIENT
  Sex: Female
  Weight: 74.83 kg

DRUGS (9)
  1. DUPIXENT [Suspect]
     Active Substance: DUPILUMAB
     Indication: Dermatitis atopic
     Dosage: 300 MG, QOW
     Route: 058
  2. ARMOUR THYROID [Concomitant]
     Active Substance: THYROID, PORCINE
  3. ELESTRIN [Concomitant]
     Active Substance: ESTRADIOL
  4. HYDROCHLOROTHIAZIDE [Concomitant]
     Active Substance: HYDROCHLOROTHIAZIDE
  5. PROGESTERONE [Concomitant]
     Active Substance: PROGESTERONE
  6. HYDROCHLOROTHIAZIDE [Concomitant]
     Active Substance: HYDROCHLOROTHIAZIDE
  7. PROGESTERONE [Concomitant]
     Active Substance: PROGESTERONE
  8. DIVIGEL [Concomitant]
     Active Substance: ESTRADIOL
  9. TESTOSTERONE [Concomitant]
     Active Substance: TESTOSTERONE

REACTIONS (3)
  - Vision blurred [Unknown]
  - Photophobia [Unknown]
  - Injection site pain [Unknown]
